FAERS Safety Report 8396745-1 (Version None)
Quarter: 2012Q2

REPORT INFORMATION
  Report Type: 
  Country: None (occurrence: None)
  Receive Date: 20120530
  Receipt Date: 20120524
  Transmission Date: 20120825
  Serious: Yes (Death)
  Sender: FDA-Public Use
  Company Number: US-CELGENEUS-163-21880-12051362

PATIENT
  Sex: Male

DRUGS (5)
  1. LISINOPRIL [Concomitant]
     Dosage: 20-25MG
     Route: 065
  2. REVLIMID [Suspect]
     Indication: MULTIPLE MYELOMA
     Dosage: 10 MILLIGRAM
     Route: 048
     Dates: start: 20120418, end: 20120509
  3. JANUMET [Concomitant]
     Dosage: 5-500
     Route: 065
  4. LIPITOR [Concomitant]
     Dosage: 40 MILLIGRAM
     Route: 065
  5. REVLIMID [Suspect]

REACTIONS (3)
  - MYELODYSPLASTIC SYNDROME [None]
  - RASH [None]
  - MULTIPLE MYELOMA [None]
